FAERS Safety Report 9637404 (Version 6)
Quarter: 2014Q2

REPORT INFORMATION
  Report Type: Spontaneous
  Country: FR (occurrence: FR)
  Receive Date: 20131022
  Receipt Date: 20140409
  Transmission Date: 20141212
  Serious: Yes (Hospitalization)
  Sender: FDA-Public Use
  Company Number: FR-MPIJNJ-2013JNJ000665

PATIENT
  Sex: 0

DRUGS (9)
  1. VELCADE [Suspect]
     Indication: PLASMA CELL MYELOMA
     Dosage: 1.3 MG/M2, UNK
     Route: 058
     Dates: start: 20130722, end: 20131014
  2. VELCADE [Suspect]
     Dosage: 1.0 UNK, UNK
     Route: 065
     Dates: start: 20130909, end: 20130926
  3. DEXAMETHASONE [Suspect]
     Indication: PLASMA CELL MYELOMA
     Dosage: 20 MG, UNK
     Route: 048
     Dates: start: 20130722, end: 20130926
  4. ZELITREX [Concomitant]
     Indication: ANTIVIRAL PROPHYLAXIS
     Dosage: UNK
     Dates: start: 20130723
  5. HEPTAMYL [Concomitant]
     Indication: HYPOTENSION
     Dosage: UNK
     Dates: start: 20130822
  6. KARDEGIC [Concomitant]
     Indication: PROPHYLAXIS
     Dosage: UNK
  7. FLUVASTATIN [Concomitant]
     Indication: HYPERCHOLESTEROLAEMIA
     Dosage: UNK
     Dates: start: 20110225
  8. FLECAINE [Concomitant]
     Indication: ATRIAL FIBRILLATION
     Dosage: UNK
  9. INEXIUM                            /01479302/ [Concomitant]
     Indication: PROPHYLAXIS
     Dosage: UNK

REACTIONS (7)
  - Thoracic vertebral fracture [Recovered/Resolved with Sequelae]
  - Fall [Unknown]
  - Hypotension [Unknown]
  - General physical health deterioration [Unknown]
  - Nausea [Unknown]
  - Vomiting [Unknown]
  - Neuropathy peripheral [Unknown]
